FAERS Safety Report 5373269-7 (Version None)
Quarter: 2007Q2

REPORT INFORMATION
  Report Type: 
  Country: None (occurrence: None)
  Receive Date: 20070628
  Receipt Date: 20070622
  Transmission Date: 20071010
  Serious: Yes (Other)
  Sender: FDA-Public Use
  Company Number: US-JNJFOC-20070605606

PATIENT
  Age: 70 Year
  Sex: Female
  Weight: 85.28 kg

DRUGS (5)
  1. EXTRA STRENGTH TYLENOL [Suspect]
  2. EXTRA STRENGTH TYLENOL [Suspect]
     Indication: TOOTHACHE
     Dosage: 1000MG, 2-3 TIMES DAILY
  3. COZAAR [Concomitant]
     Indication: HYPERTENSION
  4. HYPERTENSION MEDICATION [Concomitant]
     Indication: HYPERTENSION
  5. ATENOLOL [Concomitant]
     Indication: CHEST PAIN

REACTIONS (1)
  - HYPERTENSION [None]
